FAERS Safety Report 6933683-2 (Version None)
Quarter: 2010Q3

REPORT INFORMATION
  Report Type: 
  Country: None (occurrence: None)
  Receive Date: 20100820
  Receipt Date: 20100813
  Transmission Date: 20110219
  Serious: Yes (Hospitalization)
  Sender: FDA-Public Use
  Company Number: US-B.I. PHARMACEUTICALS,INC./RIDGEFIELD-2010-BP-09262BP

PATIENT
  Age: 76 Year
  Sex: Female

DRUGS (3)
  1. MIRAPEX [Suspect]
     Indication: RESTLESS LEGS SYNDROME
     Dosage: 3 MG
     Route: 048
  2. MIRAPEX [Suspect]
     Route: 048
     Dates: start: 20100201
  3. LASIX [Suspect]
     Indication: FLUID RETENTION
     Route: 048

REACTIONS (4)
  - DYSKINESIA [None]
  - RENAL FAILURE [None]
  - RESTLESS LEGS SYNDROME [None]
  - STAPHYLOCOCCAL INFECTION [None]
